FAERS Safety Report 8567918-X (Version None)
Quarter: 2012Q3

REPORT INFORMATION
  Report Type: 
  Country: None (occurrence: None)
  Receive Date: 20120803
  Receipt Date: 20120728
  Transmission Date: 20120928
  Serious: Yes (Other)
  Sender: FDA-Public Use
  Company Number: US-US-EMD SERONO, INC.-7140121

PATIENT
  Sex: Female
  Weight: 172 kg

DRUGS (9)
  1. VICODIN [Concomitant]
     Indication: PAIN IN EXTREMITY
  2. POTASSIUM PILLS [Concomitant]
     Indication: BLOOD POTASSIUM DECREASED
  3. LEVOTHYROXINE SODIUM [Concomitant]
     Indication: THYROID DISORDER
  4. OXYBUTYNIN [Concomitant]
     Indication: URINARY INCONTINENCE
  5. LYRICA [Concomitant]
     Indication: MULTIPLE SCLEROSIS
  6. BACLOFEN [Concomitant]
     Indication: MUSCLE SPASMS
  7. GABAPENTIN [Concomitant]
     Indication: MUSCLE SPASMS
  8. REBIF [Suspect]
     Indication: PRODUCT USED FOR UNKNOWN INDICATION
     Route: 058
     Dates: start: 20110726
  9. LASIX [Concomitant]
     Indication: OEDEMA PERIPHERAL

REACTIONS (3)
  - DIABETES MELLITUS [None]
  - BLOOD TRIGLYCERIDES INCREASED [None]
  - INJECTION SITE ERYTHEMA [None]
